FAERS Safety Report 4591134-X (Version None)
Quarter: 2005Q1

REPORT INFORMATION
  Report Type: 
  Country: None (occurrence: None)
  Receive Date: 20050218
  Receipt Date: 20050113
  Transmission Date: 20050727
  Serious: Yes (Other)
  Sender: FDA-Public Use
  Company Number: 2004235102CA

PATIENT
  Age: 60 Year
  Sex: Female
  Weight: 165 kg

DRUGS (2)
  1. BEXTRA [Suspect]
     Indication: SCIATICA
     Dosage: (20 MG), ORAL
     Route: 048
     Dates: start: 20040901, end: 20040916
  2. BUPROPION HYDROCHLORIDE [Concomitant]

REACTIONS (9)
  - ACTIVITIES OF DAILY LIVING IMPAIRED [None]
  - BLISTER [None]
  - ERYTHEMA [None]
  - NAIL DISORDER [None]
  - RASH [None]
  - SKIN EXFOLIATION [None]
  - SKIN HYPERTROPHY [None]
  - SKIN REACTION [None]
  - WOUND [None]
